FAERS Safety Report 8941818 (Version 1)
Quarter: 2012Q4

REPORT INFORMATION
  Report Type: 
  Country: US (occurrence: US)
  Receive Date: 20121203
  Receipt Date: 20121203
  Transmission Date: 20130627
  Serious: No
  Sender: FDA-Public Use
  Company Number: US-BAYER-2012-121872

PATIENT
  Sex: Male
  Weight: 72.56 kg

DRUGS (2)
  1. BETASERON [Suspect]
     Dosage: 0.3 mg, QOD
     Route: 058
  2. GILENYA [Concomitant]
     Dosage: 0.5 mg, UNK

REACTIONS (1)
  - Drug ineffective [None]
